FAERS Safety Report 4426506-7 (Version None)
Quarter: 2004Q3

REPORT INFORMATION
  Report Type: 
  Country: None (occurrence: None)
  Receive Date: 20040816
  Receipt Date: 20040807
  Transmission Date: 20050211
  Serious: Yes (Hospitalization)
  Sender: FDA-Public Use
  Company Number: FR-BRISTOL-MYERS SQUIBB COMPANY-12665915

PATIENT
  Age: 14 Year
  Sex: Male

DRUGS (1)
  1. KENACORT [Suspect]
     Indication: ASTHMA
     Route: 030
     Dates: start: 20040807, end: 20040807

REACTIONS (3)
  - ANAPHYLACTIC SHOCK [None]
  - CARDIAC ARREST [None]
  - RESPIRATORY ARREST [None]
